FAERS Safety Report 8779528 (Version 1)
Quarter: 2012Q4

REPORT INFORMATION
  Report Type: 
  Country: US (occurrence: US)
  Receive Date: 20120912
  Receipt Date: 20120912
  Transmission Date: 20130627
  Serious: Yes (Other)
  Sender: FDA-Public Use
  Company Number: US-NOVOPROD-359427

PATIENT
  Sex: Female

DRUGS (2)
  1. LEVEMIR FLEXPEN [Suspect]
     Indication: TYPE 2 DIABETES MELLITUS
     Dosage: 10 U, qd
     Route: 058
     Dates: start: 201208
  2. LEVEMIR FLEXPEN [Suspect]
     Dosage: 20 U, qd
     Dates: start: 201208

REACTIONS (3)
  - Abscess [Unknown]
  - Device malfunction [Unknown]
  - Blood glucose increased [Unknown]
